FAERS Safety Report 8116203-9 (Version None)
Quarter: 2012Q1

REPORT INFORMATION
  Report Type: 
  Country: None (occurrence: None)
  Receive Date: 20120206
  Receipt Date: 20120202
  Transmission Date: 20120608
  Serious: Yes (Hospitalization, Other)
  Sender: FDA-Public Use
  Company Number: US-MERCK-1101USA01770

PATIENT
  Age: 66 Year
  Sex: Female
  Weight: 80 kg

DRUGS (7)
  1. FOSAMAX [Suspect]
     Route: 048
     Dates: start: 20061030
  2. FOSAMAX [Suspect]
     Indication: BONE LOSS
     Route: 048
     Dates: start: 20041228, end: 20100901
  3. FOSAMAX [Suspect]
     Indication: OSTEOPOROSIS
     Route: 048
     Dates: start: 20041228, end: 20100901
  4. HORMONES (UNSPECIFIED) [Concomitant]
     Route: 065
     Dates: start: 19940101
  5. VITAMINS (UNSPECIFIED) [Concomitant]
     Route: 065
  6. ZOCOR [Concomitant]
     Indication: BLOOD CHOLESTEROL INCREASED
     Route: 065
     Dates: start: 20020101
  7. CALTRATE [Concomitant]
     Route: 065

REACTIONS (51)
  - LACTOBACILLUS INFECTION [None]
  - ASPARTATE AMINOTRANSFERASE INCREASED [None]
  - VERTIGO [None]
  - MITRAL VALVE INCOMPETENCE [None]
  - MALIGNANT HYPERTENSION [None]
  - LUMBAR RADICULOPATHY [None]
  - DYSFUNCTIONAL UTERINE BLEEDING [None]
  - MALIGNANT MELANOMA [None]
  - HYPERGLYCAEMIA [None]
  - HAEMANGIOMA [None]
  - PROTEIN URINE [None]
  - URTICARIA [None]
  - SOMNOLENCE [None]
  - FEMUR FRACTURE [None]
  - ACTINIC ELASTOSIS [None]
  - ALANINE AMINOTRANSFERASE INCREASED [None]
  - FOOT FRACTURE [None]
  - FATIGUE [None]
  - NEUROPATHY PERIPHERAL [None]
  - TRICUSPID VALVE INCOMPETENCE [None]
  - JOINT EFFUSION [None]
  - BLOOD PRESSURE INCREASED [None]
  - BRONCHITIS [None]
  - MELANOCYTIC NAEVUS [None]
  - UTERINE LEIOMYOMA [None]
  - SPINAL COLUMN STENOSIS [None]
  - MENISCUS LESION [None]
  - OSTEOARTHRITIS [None]
  - UTERINE MASS [None]
  - CAROTID BRUIT [None]
  - ELECTROCARDIOGRAM ABNORMAL [None]
  - WOUND INFECTION STAPHYLOCOCCAL [None]
  - BREAST ABSCESS [None]
  - GAIT DISTURBANCE [None]
  - FEELING HOT [None]
  - ARTHRALGIA [None]
  - OESOPHAGEAL SPASM [None]
  - UTERINE CERVIX STENOSIS [None]
  - FALL [None]
  - SYNOVIAL CYST [None]
  - RASH [None]
  - PAIN IN EXTREMITY [None]
  - GASTROOESOPHAGEAL REFLUX DISEASE [None]
  - HYPERTENSION [None]
  - MIGRAINE [None]
  - INSOMNIA [None]
  - ANGIOEDEMA [None]
  - AMNESIA [None]
  - BACK PAIN [None]
  - CELLULITIS [None]
  - CHEST PAIN [None]
